FAERS Safety Report 4644879-7 (Version None)
Quarter: 2005Q2

REPORT INFORMATION
  Report Type: 
  Country: None (occurrence: None)
  Receive Date: 20050426
  Receipt Date: 20050420
  Transmission Date: 20051028
  Serious: Yes (Disabling)
  Sender: FDA-Public Use
  Company Number: US-MERCK-0504USA03680

PATIENT
  Age: 78 Year
  Sex: Female

DRUGS (11)
  1. VIOXX [Suspect]
     Indication: ARTHRITIS
     Route: 048
     Dates: start: 20020101, end: 20040901
  2. NAPROXEN [Concomitant]
     Route: 065
  3. [THERAPY UNSPECIFIED] [Concomitant]
     Route: 065
  4. [THERAPY UNSPECIFIED] [Concomitant]
     Route: 065
  5. [THERAPY UNSPECIFIED] [Concomitant]
     Route: 065
  6. LEVOTHYROXINE SODIUM [Concomitant]
     Route: 065
  7. PLAVIX [Concomitant]
     Route: 065
  8. ZOCOR [Concomitant]
     Route: 048
  9. AMARYL [Concomitant]
     Route: 065
  10. QUININE [Concomitant]
     Route: 065
  11. LISINOPRIL [Concomitant]
     Route: 065

REACTIONS (1)
  - ABASIA [None]
